FAERS Safety Report 23006209 (Version 2)
Quarter: 2023Q4

REPORT INFORMATION
  Report Type: Spontaneous
  Country: UA (occurrence: UA)
  Receive Date: 20230929
  Receipt Date: 20231013
  Transmission Date: 20240109
  Serious: Yes (Other)
  Sender: FDA-Public Use
  Company Number: UA-BAYER-2023A136080

PATIENT
  Age: 80 Year
  Sex: Female

DRUGS (1)
  1. EYLEA [Suspect]
     Active Substance: AFLIBERCEPT
     Indication: Neovascular age-related macular degeneration
     Dosage: 1 DF, INJECTION OF EYLEA INTO BOTH EYES, SOLUTION FOR INJECTION, 40MG/ML
     Route: 031
     Dates: start: 20230918, end: 20230918

REACTIONS (8)
  - Vitritis [Recovering/Resolving]
  - Endophthalmitis [Unknown]
  - Product quality issue [Unknown]
  - Visual impairment [Recovering/Resolving]
  - Anterior chamber opacity [Unknown]
  - General physical health deterioration [Unknown]
  - Asthenia [Unknown]
  - Eye pain [Recovering/Resolving]

NARRATIVE: CASE EVENT DATE: 20230101
